FAERS Safety Report 8315711 (Version 14)
Quarter: 2015Q2

REPORT INFORMATION
  Report Type: Report from Study
  Country: SE (occurrence: SE)
  Receive Date: 20111229
  Receipt Date: 20150514
  Transmission Date: 20150821
  Serious: Yes (Life-Threatening, Hospitalization)
  Sender: FDA-Public Use
  Company Number: SE-ROCHE-1010555

PATIENT
  Age: 58 Year
  Sex: Female
  Weight: 95.5 kg

DRUGS (13)
  1. ENOXAPARIN NATRIUM [Concomitant]
     Route: 065
     Dates: start: 20110809
  2. VEMURAFENIB [Suspect]
     Active Substance: VEMURAFENIB
     Route: 048
     Dates: start: 20111114
  3. XENICAL [Concomitant]
     Active Substance: ORLISTAT
     Route: 065
     Dates: start: 20110809
  4. BETAMETASONA [Concomitant]
     Route: 065
     Dates: start: 20111031, end: 20120207
  5. PARACETAMOL [Concomitant]
     Active Substance: ACETAMINOPHEN
     Route: 065
     Dates: start: 20110809, end: 20120110
  6. VEMURAFENIB [Suspect]
     Active Substance: VEMURAFENIB
     Route: 048
     Dates: start: 20111121, end: 20111127
  7. VEMURAFENIB [Suspect]
     Active Substance: VEMURAFENIB
     Route: 048
     Dates: start: 20111128, end: 20111226
  8. OMEPRAZOL [Concomitant]
     Active Substance: OMEPRAZOLE
     Route: 065
     Dates: start: 20110928
  9. VEMURAFENIB [Suspect]
     Active Substance: VEMURAFENIB
     Indication: MALIGNANT MELANOMA
     Dosage: LAST DOSE PRIOR TO SAE: 05/NOV/2011
     Route: 048
     Dates: start: 20111031, end: 20111105
  10. VEMURAFENIB [Suspect]
     Active Substance: VEMURAFENIB
     Route: 048
     Dates: start: 20111227
  11. METOCLOPRAMID [Concomitant]
     Active Substance: METOCLOPRAMIDE
     Route: 065
     Dates: start: 20110923
  12. LEVOTYROXIN [Concomitant]
     Indication: HYPOTHYROIDISM
     Route: 065
     Dates: start: 20110809
  13. BETNOVAT CREAM [Concomitant]
     Route: 065
     Dates: start: 2011

REACTIONS (1)
  - Tumour lysis syndrome [Recovered/Resolved]

NARRATIVE: CASE EVENT DATE: 20111105
